FAERS Safety Report 12602462 (Version 1)
Quarter: 2016Q3

REPORT INFORMATION
  Report Type: Spontaneous
  Country: US (occurrence: None)
  Receive Date: 20160727
  Receipt Date: 20160727
  Transmission Date: 20161109
  Serious: No
  Sender: FDA-Public Use
  Company Number: None

PATIENT
  Age: 39 Year
  Sex: Male

DRUGS (7)
  1. CARVEDILOL. [Concomitant]
     Active Substance: CARVEDILOL
  2. METFORMIN-SITAGLIPTAN [Suspect]
     Active Substance: METFORMIN HYDROCHLORIDE\SITAGLIPTIN PHOSPHATE
     Indication: HYPERGLYCAEMIA
     Dosage: 50/1000 MG - 2 TABS DAILY PO
     Route: 048
     Dates: end: 20160516
  3. CALCITRIOL. [Concomitant]
     Active Substance: CALCITRIOL
  4. AMLODIPINE [Concomitant]
     Active Substance: AMLODIPINE BESYLATE
  5. ATORVASTATIN [Concomitant]
     Active Substance: ATORVASTATIN
  6. CALCIUM ACETATE. [Concomitant]
     Active Substance: CALCIUM ACETATE
  7. FUROSEMIDE. [Concomitant]
     Active Substance: FUROSEMIDE

REACTIONS (10)
  - Nausea [None]
  - Hypothermia [None]
  - Malaise [None]
  - Blood lactic acid increased [None]
  - Lethargy [None]
  - Dizziness [None]
  - Vomiting [None]
  - Somnolence [None]
  - Haemodialysis [None]
  - Sepsis [None]

NARRATIVE: CASE EVENT DATE: 20160516
